FAERS Safety Report 7071312-0 (Version None)
Quarter: 2010Q4

REPORT INFORMATION
  Report Type: 
  Country: None (occurrence: None)
  Receive Date: 20101028
  Receipt Date: 20101028
  Transmission Date: 20110411
  Serious: Yes (Other)
  Sender: FDA-Public Use
  Company Number: None

PATIENT
  Age: 2 Year
  Sex: Female
  Weight: 11.7935 kg

DRUGS (1)
  1. HYLAND'S TEETHING TABLETS HYLAND'S [Suspect]
     Indication: TEETHING
     Dosage: 2-3 TABLETS AS NEEDED PO (MARCH/APRIL-OCTOBER 2010)
     Route: 048

REACTIONS (3)
  - ACCIDENTAL EXPOSURE [None]
  - CONVULSION [None]
  - MEDICATION ERROR [None]
